FAERS Safety Report 8841994 (Version 1)
Quarter: 2012Q4

REPORT INFORMATION
  Report Type: Spontaneous
  Country: US (occurrence: None)
  Receive Date: 20121015
  Receipt Date: 20121015
  Transmission Date: 20130627
  Serious: Yes (Other)
  Sender: FDA-Public Use
  Company Number: None

PATIENT
  Age: 64 Year
  Sex: Female

DRUGS (2)
  1. TEMODAR [Suspect]
     Indication: MALIGNANT NEOPLASM OF BRAIN
     Dosage: 250mg caps-take 1 cap with 4-20mg daily 5 days oral
     Route: 048
     Dates: start: 20120820, end: 20121001
  2. TEMODAR [Suspect]
     Dosage: 20mg cap-take 4 with 1-25mg cap daily 5 days oral
     Route: 048

REACTIONS (4)
  - Rash [None]
  - Swelling [None]
  - Erythema [None]
  - Skin warm [None]
